FAERS Safety Report 9030740 (Version 1)
Quarter: 2013Q1

REPORT INFORMATION
  Report Type: Report from Study
  Country: BR (occurrence: BR)
  Receive Date: 20130123
  Receipt Date: 20130123
  Transmission Date: 20140127
  Serious: Yes (Other)
  Sender: FDA-Public Use
  Company Number: BR-ABBOTT-13P-020-1037868-00

PATIENT
  Age: 77 None
  Sex: Female
  Weight: 70 kg

DRUGS (9)
  1. HUMIRA [Suspect]
     Indication: RHEUMATOID ARTHRITIS
     Route: 058
     Dates: start: 201207
  2. METHOTREXATO [Suspect]
     Indication: RHEUMATOID ARTHRITIS
     Route: 048
  3. PREDNISONE [Concomitant]
     Indication: RHEUMATOID ARTHRITIS
     Route: 048
     Dates: start: 2010
  4. CAPTOPRIL [Concomitant]
     Indication: HYPERTENSION
     Route: 048
     Dates: start: 2009
  5. HYDROCHLOROTHIAZIDE [Concomitant]
     Indication: HYPERTENSION
     Dates: start: 2009
  6. PRED FORT [Concomitant]
     Indication: INFLAMMATION
     Route: 047
     Dates: start: 2010
  7. ATROPINE [Concomitant]
     Indication: PUPIL DILATION PROCEDURE
     Route: 047
     Dates: start: 20130101
  8. GLAUCOTRAT [Concomitant]
     Indication: INTRAOCULAR PRESSURE TEST ABNORMAL
     Route: 047
     Dates: start: 201211
  9. GLAUB [Concomitant]
     Indication: INTRAOCULAR PRESSURE TEST ABNORMAL
     Route: 047
     Dates: start: 201211

REACTIONS (12)
  - Hallucination [Not Recovered/Not Resolved]
  - Hypertension [Recovered/Resolved]
  - Speech disorder [Not Recovered/Not Resolved]
  - Contusion [Not Recovered/Not Resolved]
  - Alopecia [Recovering/Resolving]
  - Pain in extremity [Not Recovered/Not Resolved]
  - Neck pain [Not Recovered/Not Resolved]
  - Back pain [Not Recovered/Not Resolved]
  - Diarrhoea [Unknown]
  - Rash macular [Unknown]
  - Blister [Unknown]
  - Dermatitis diaper [Unknown]
